FAERS Safety Report 23949048 (Version 4)
Quarter: 2024Q3

REPORT INFORMATION
  Report Type: Spontaneous
  Country: US (occurrence: US)
  Receive Date: 20240607
  Receipt Date: 20240823
  Transmission Date: 20241017
  Serious: No
  Sender: LEO PHARM
  Company Number: US-LEO Pharma-370931

PATIENT
  Age: 41 Year
  Sex: Female

DRUGS (1)
  1. ADBRY [Suspect]
     Active Substance: TRALOKINUMAB-LDRM
     Indication: Dermatitis atopic
     Route: 058
     Dates: start: 20240430

REACTIONS (17)
  - Pruritus [Unknown]
  - Tinea versicolour [Not Recovered/Not Resolved]
  - Menstruation irregular [Unknown]
  - Muscle swelling [Unknown]
  - Influenza like illness [Unknown]
  - Musculoskeletal stiffness [Unknown]
  - Dry throat [Unknown]
  - Lip exfoliation [Unknown]
  - Nasal dryness [Unknown]
  - Lip dry [Unknown]
  - Dry skin [Unknown]
  - Dry eye [Unknown]
  - Rash [Unknown]
  - Skin warm [Not Recovered/Not Resolved]
  - Ocular discomfort [Unknown]
  - Musculoskeletal stiffness [Unknown]
  - Arthralgia [Unknown]
